FAERS Safety Report 7048491-4 (Version None)
Quarter: 2010Q4

REPORT INFORMATION
  Report Type: 
  Country: None (occurrence: None)
  Receive Date: 20101015
  Receipt Date: 20101015
  Transmission Date: 20110411
  Serious: Yes (Other)
  Sender: FDA-Public Use
  Company Number: None

PATIENT

DRUGS (2)
  1. OXYCONTIN [Suspect]
     Indication: MYALGIA
     Dosage: 20MG 2 TIMES A DAY PO
     Route: 048
     Dates: start: 20091020, end: 20101014
  2. OXYCONTIN [Suspect]
     Dosage: 40MG 4 TIMES A DAY PO
     Route: 048
     Dates: start: 20091020, end: 20101014

REACTIONS (2)
  - DRUG INEFFECTIVE [None]
  - PRODUCT FORMULATION ISSUE [None]
